FAERS Safety Report 15833617 (Version 1)
Quarter: 2019Q1

REPORT INFORMATION
  Report Type: Spontaneous
  Country: US (occurrence: US)
  Receive Date: 20190116
  Receipt Date: 20190116
  Transmission Date: 20190417
  Serious: Yes (Hospitalization)
  Sender: FDA-Public Use
  Company Number: US-ALLERGAN-1901612US

PATIENT
  Age: 83 Year
  Sex: Female

DRUGS (3)
  1. TRAMADOL. [Concomitant]
     Active Substance: TRAMADOL
     Indication: PAIN
     Dosage: 50 MG, TID
     Route: 048
  2. VIIBRYD [Suspect]
     Active Substance: VILAZODONE HYDROCHLORIDE
     Indication: DEPRESSION
     Dosage: 40 MG, QAM
     Route: 048
     Dates: start: 2018
  3. ADDERALL [Concomitant]
     Active Substance: AMPHETAMINE ASPARTATE\AMPHETAMINE SULFATE\DEXTROAMPHETAMINE SACCHARATE\DEXTROAMPHETAMINE SULFATE
     Indication: ATTENTION DEFICIT/HYPERACTIVITY DISORDER
     Dosage: 10 MG, QD

REACTIONS (10)
  - Pyrexia [Recovered/Resolved]
  - Dizziness [Not Recovered/Not Resolved]
  - Rash [Recovered/Resolved]
  - Hallucination [Recovered/Resolved]
  - Serotonin syndrome [Recovered/Resolved]
  - Diplopia [Recovered/Resolved]
  - Blindness transient [Recovered/Resolved]
  - Musculoskeletal stiffness [Recovered/Resolved]
  - Muscle twitching [Recovered/Resolved]
  - Confusional state [Not Recovered/Not Resolved]
